FAERS Safety Report 20517829 (Version 1)
Quarter: 2022Q1

REPORT INFORMATION
  Report Type: Spontaneous
  Country: US (occurrence: None)
  Receive Date: 20220224
  Receipt Date: 20220224
  Transmission Date: 20220423
  Serious: Yes (Hospitalization)
  Sender: FDA-Public Use
  Company Number: None

PATIENT
  Age: 30 Year
  Sex: Male
  Weight: 99 kg

DRUGS (1)
  1. TECARTUS [Suspect]
     Active Substance: BREXUCABTAGENE AUTOLEUCEL
     Indication: Lymphocytic leukaemia
     Dates: start: 20220208, end: 20220208

REACTIONS (2)
  - Cytokine release syndrome [None]
  - Febrile neutropenia [None]

NARRATIVE: CASE EVENT DATE: 20220206
